FAERS Safety Report 20693212 (Version 2)
Quarter: 2022Q2

REPORT INFORMATION
  Report Type: Spontaneous
  Country: DE (occurrence: DE)
  Receive Date: 20220410
  Receipt Date: 20220604
  Transmission Date: 20220721
  Serious: Yes (Life-Threatening, Hospitalization, Other)
  Sender: FDA-Public Use
  Company Number: DE-NOVARTISPH-NVSC2022DE080853

PATIENT
  Age: 41 Year
  Sex: Male

DRUGS (7)
  1. LORAZEPAM [Interacting]
     Active Substance: LORAZEPAM
     Indication: Product used for unknown indication
     Dosage: 1 MG, QD (3 X 1 MG/D)
     Route: 065
  2. VALPROATE [Interacting]
     Active Substance: VALPROIC ACID
     Indication: Product used for unknown indication
     Dosage: 1 G, QD (2 X 1 G/D, THEN REDUCED TO 2 X 750 MG/D)
     Route: 065
  3. VALPROATE [Interacting]
     Active Substance: VALPROIC ACID
     Dosage: 750 MG, QD (2 X 1 G/D, THEN REDUCED TO 2 X 750 MG/D)
     Route: 065
  4. CLOBAZAM [Interacting]
     Active Substance: CLOBAZAM
     Indication: Product used for unknown indication
     Dosage: UNK
     Route: 065
  5. ESLICARBAZEPINE [Interacting]
     Active Substance: ESLICARBAZEPINE
     Indication: Product used for unknown indication
     Dosage: 1.2 G, QD (1 X 1,2 G/D, THEN REDUCED TO 1 X 800 MG/D ON)
     Route: 065
  6. ESLICARBAZEPINE [Interacting]
     Active Substance: ESLICARBAZEPINE
     Dosage: 800 MG, QD (1 X 1,2 G/D, THEN REDUCED TO 1 X 800 MG/D ON)
     Route: 065
  7. PERAMPANEL [Concomitant]
     Active Substance: PERAMPANEL
     Indication: Product used for unknown indication
     Dosage: 8 MG, QD (1 X 8 MG/D)
     Route: 065

REACTIONS (6)
  - Subdural haematoma [Recovered/Resolved]
  - Fall [Recovered/Resolved]
  - Skull fracture [Recovered/Resolved]
  - Drug interaction [Recovered/Resolved]
  - Ataxia [Recovered/Resolved]
  - Overdose [Recovered/Resolved]

NARRATIVE: CASE EVENT DATE: 20211106
